FAERS Safety Report 8931171 (Version 2)
Quarter: 2012Q4

REPORT INFORMATION
  Report Type: 
  Country: DE (occurrence: DE)
  Receive Date: 20121128
  Receipt Date: 20121128
  Transmission Date: 20130627
  Serious: Yes (Hospitalization)
  Sender: FDA-Public Use
  Company Number: DE-ABBOTT-12P-062-1009570-00

PATIENT
  Age: 78 Year
  Sex: Female

DRUGS (1)
  1. GRIPPEIMPFSTOFF [Suspect]
     Indication: IMMUNISATION

REACTIONS (3)
  - General physical health deterioration [Unknown]
  - Myocardial infarction [Unknown]
  - Hyperhidrosis [Unknown]
